FAERS Safety Report 8812642 (Version 1)
Quarter: 2012Q4

REPORT INFORMATION
  Report Type: 
  Country: US (occurrence: US)
  Receive Date: 20120927
  Receipt Date: 20120927
  Transmission Date: 20130627
  Serious: Yes (Other)
  Sender: FDA-Public Use
  Company Number: GXBR2012US001955

PATIENT
  Sex: Female

DRUGS (9)
  1. METHYLPREDNISOLONE NOS [Suspect]
     Dosage: Take as directed
     Route: 048
  2. METHYLPREDNISOLONE ACETATE [Suspect]
     Dosage: UNK DF, UNK
  3. PREDNISONE [Suspect]
     Dosage: UNK DF, UNK
     Route: 048
  4. TRIAMCINOLONE [Suspect]
     Dosage: UNK DF, UNK
     Route: 061
  5. BETAMETHASONE DIPROPIONATE [Suspect]
     Dosage: UNK DF, UNK
     Route: 061
  6. KENALOG [Suspect]
     Dosage: UNK DF, UNK
  7. KENALOG [Suspect]
     Dosage: UNK DF, UNK
     Route: 048
  8. KENALOG [Suspect]
     Dosage: UNK DF, UNK
     Route: 061
  9. DELTASONE [Suspect]
     Dosage: UNK DF, UNK

REACTIONS (2)
  - Arthropathy [Not Recovered/Not Resolved]
  - Bone disorder [Not Recovered/Not Resolved]
